FAERS Safety Report 10359939 (Version 1)
Quarter: 2014Q3

REPORT INFORMATION
  Report Type: Spontaneous
  Country: US (occurrence: None)
  Receive Date: 20140731
  Receipt Date: 20140731
  Transmission Date: 20150326
  Serious: No
  Sender: FDA-Public Use
  Company Number: None

PATIENT
  Age: 26 Year
  Sex: Female

DRUGS (2)
  1. VIVITROL [Suspect]
     Active Substance: NALTREXONE
     Indication: DRUG DEPENDENCE
     Dosage: Q4WK
     Route: 030
     Dates: start: 20140513, end: 20140611
  2. VIVITROL [Suspect]
     Active Substance: NALTREXONE
     Indication: ALCOHOLISM
     Dosage: Q4WK
     Route: 030
     Dates: start: 20140513, end: 20140611

REACTIONS (1)
  - Economic problem [None]

NARRATIVE: CASE EVENT DATE: 20140730
